FAERS Safety Report 12581010 (Version 1)
Quarter: 2016Q3

REPORT INFORMATION
  Report Type: Report from Study
  Country: US (occurrence: US)
  Receive Date: 20160721
  Receipt Date: 20160721
  Transmission Date: 20161109
  Serious: Yes (Other)
  Sender: FDA-Public Use
  Company Number: US-BIOGEN-2016BI00268048

PATIENT
  Age: 32 Year
  Sex: Female

DRUGS (1)
  1. AVONEX [Suspect]
     Active Substance: INTERFERON BETA-1A
     Indication: EXPOSURE VIA FATHER
     Dates: start: 20140915

REACTIONS (2)
  - Cephalo-pelvic disproportion [Recovered/Resolved]
  - Exposure via father [Recovered/Resolved]

NARRATIVE: CASE EVENT DATE: 201508
